FAERS Safety Report 8289609-5 (Version None)
Quarter: 2012Q2

REPORT INFORMATION
  Report Type: 
  Country: None (occurrence: None)
  Receive Date: 20120417
  Receipt Date: 20120412
  Transmission Date: 20120825
  Serious: Yes (Death)
  Sender: FDA-Public Use
  Company Number: BR-BRISTOL-MYERS SQUIBB COMPANY-16521635

PATIENT
  Age: 88 Year
  Sex: Female
  Weight: 49 kg

DRUGS (5)
  1. ONGLYZA [Suspect]
     Indication: TYPE 2 DIABETES MELLITUS
     Dosage: 1 DOSAGE FORM = 1 TABLET
     Route: 048
  2. CARDIOL [Concomitant]
  3. EPREX [Concomitant]
  4. LANTUS [Concomitant]
  5. PROLOPA [Concomitant]

REACTIONS (1)
  - LUNG DISORDER [None]
